FAERS Safety Report 5833968-7 (Version None)
Quarter: 2008Q3

REPORT INFORMATION
  Report Type: 
  Country: None (occurrence: None)
  Receive Date: 20080801
  Receipt Date: 20080801
  Transmission Date: 20090109
  Serious: Yes (Other)
  Sender: FDA-Public Use
  Company Number: None

PATIENT
  Sex: Female

DRUGS (1)
  1. FLUPHENAZINE [Suspect]
     Dosage: INGESTED
     Dates: start: 20080701, end: 20080701

REACTIONS (5)
  - ABDOMINAL PAIN [None]
  - CHEST DISCOMFORT [None]
  - DIARRHOEA [None]
  - HEART RATE ABNORMAL [None]
  - PHARMACEUTICAL PRODUCT COMPLAINT [None]
